FAERS Safety Report 4520392-2 (Version None)
Quarter: 2004Q4

REPORT INFORMATION
  Report Type: 
  Country: None (occurrence: None)
  Receive Date: 20041206
  Receipt Date: 20041206
  Transmission Date: 20050328
  Serious: No
  Sender: FDA-Public Use
  Company Number: None

PATIENT
  Age: 44 Year
  Sex: Female
  Weight: 93.441 kg

DRUGS (7)
  1. PAXIL [Suspect]
     Indication: BIPOLAR DISORDER
     Dates: start: 20021022, end: 20041022
  2. PAXIL [Suspect]
     Indication: DEPRESSION
     Dates: start: 20021022, end: 20041022
  3. SYNTHROID [Concomitant]
  4. RANITIDINE [Concomitant]
  5. TUMS [Concomitant]
  6. MULTIVITAMIN [Concomitant]
  7. DARVOCET [Concomitant]

REACTIONS (1)
  - LIVER FUNCTION TEST ABNORMAL [None]
